FAERS Safety Report 12254891 (Version 3)
Quarter: 2016Q2

REPORT INFORMATION
  Report Type: Report from Study
  Country: US (occurrence: US)
  Receive Date: 20160411
  Receipt Date: 20160525
  Transmission Date: 20160815
  Serious: Yes (Other)
  Sender: FDA-Public Use
  Company Number: US-009507513-1604USA003755

PATIENT
  Age: 60 Year
  Sex: Female

DRUGS (2)
  1. REBETOL [Suspect]
     Active Substance: RIBAVIRIN
     Indication: HEPATITIS C
     Dosage: UNK
  2. SOFOSBUVIR [Suspect]
     Active Substance: SOFOSBUVIR
     Indication: HEPATITIS C
     Dosage: UNK

REACTIONS (3)
  - Hepatitis C [Unknown]
  - Ascites [Recovering/Resolving]
  - Hyperbilirubinaemia [Recovered/Resolved]
